FAERS Safety Report 13929840 (Version 1)
Quarter: 2017Q3

REPORT INFORMATION
  Report Type: Spontaneous
  Country: DE (occurrence: DE)
  Receive Date: 20170901
  Receipt Date: 20170901
  Transmission Date: 20171127
  Serious: Yes (Other)
  Sender: FDA-Public Use
  Company Number: DE-SUN PHARMACEUTICAL INDUSTRIES LTD-2017RR-148918

PATIENT
  Sex: Female

DRUGS (8)
  1. ALENDRONSAURE BASICS EINMAL WOCHENTLICH 70MG TABLETTEN [Suspect]
     Active Substance: ALENDRONATE SODIUM
     Indication: PRODUCT USED FOR UNKNOWN INDICATION
     Dosage: UNK
     Route: 065
     Dates: start: 201609, end: 201706
  2. QUENSYL 200 MG [Suspect]
     Active Substance: HYDROXYCHLOROQUINE
     Indication: RHEUMATIC DISORDER
     Dosage: 1-0-1; (2-0-1)
     Route: 048
     Dates: start: 201609, end: 201706
  3. CANDESARTAN. [Concomitant]
     Active Substance: CANDESARTAN
     Indication: PRODUCT USED FOR UNKNOWN INDICATION
     Route: 065
  4. SUFASALAZIN [Concomitant]
     Indication: PRODUCT USED FOR UNKNOWN INDICATION
     Route: 065
  5. PREDNISOLONE. [Concomitant]
     Active Substance: PREDNISOLONE
     Indication: PRODUCT USED FOR UNKNOWN INDICATION
     Dosage: 2.5 MG, UNK
     Route: 065
  6. VITAMIN D [Concomitant]
     Active Substance: CHOLECALCIFEROL
     Indication: PRODUCT USED FOR UNKNOWN INDICATION
     Dosage: UNK
     Route: 065
  7. ASPIRIN. [Concomitant]
     Active Substance: ASPIRIN
     Indication: PRODUCT USED FOR UNKNOWN INDICATION
     Route: 065
  8. PANTOPRAZOL [Concomitant]
     Active Substance: PANTOPRAZOLE SODIUM
     Indication: PRODUCT USED FOR UNKNOWN INDICATION
     Route: 065

REACTIONS (10)
  - Pharyngeal oedema [Recovering/Resolving]
  - Tinnitus [Recovering/Resolving]
  - Alopecia [Recovering/Resolving]
  - Paraesthesia [Recovering/Resolving]
  - Hypokinesia [Recovering/Resolving]
  - Dyspnoea [Recovering/Resolving]
  - Head discomfort [Recovering/Resolving]
  - Tremor [Recovering/Resolving]
  - Hyperthyroidism [Recovering/Resolving]
  - Hypoaesthesia [Recovering/Resolving]
